FAERS Safety Report 15472319 (Version 2)
Quarter: 2018Q4

REPORT INFORMATION
  Report Type: Spontaneous
  Country: AU (occurrence: AU)
  Receive Date: 20181008
  Receipt Date: 20181011
  Transmission Date: 20190205
  Serious: Yes (Other)
  Sender: FDA-Public Use
  Company Number: AU-ROCHE-2193510

PATIENT
  Sex: Female

DRUGS (2)
  1. OCREVUS [Suspect]
     Active Substance: OCRELIZUMAB
     Indication: MULTIPLE SCLEROSIS
     Route: 065
  2. RITUXIMAB. [Suspect]
     Active Substance: RITUXIMAB
     Indication: PRODUCT USED FOR UNKNOWN INDICATION
     Route: 065

REACTIONS (14)
  - Body temperature decreased [Unknown]
  - Pruritus [Unknown]
  - Vomiting [Recovered/Resolved]
  - Asthenia [Unknown]
  - Weight decreased [Unknown]
  - Anaphylactic reaction [Unknown]
  - White blood cell count abnormal [Unknown]
  - Syncope [Unknown]
  - Urticaria [Unknown]
  - Inflammatory bowel disease [Unknown]
  - General physical health deterioration [Unknown]
  - Heart rate increased [Unknown]
  - Pain [Unknown]
  - Hypophagia [Unknown]
